FAERS Safety Report 6509905-9 (Version None)
Quarter: 2009Q4

REPORT INFORMATION
  Report Type: 
  Country: None (occurrence: None)
  Receive Date: 20091222
  Receipt Date: 20091211
  Transmission Date: 20100525
  Serious: Yes (Hospitalization)
  Sender: FDA-Public Use
  Company Number: PHHY2009MX43451

PATIENT
  Age: 52 Year
  Sex: Male

DRUGS (2)
  1. GALVUS MET [Suspect]
     Indication: DIABETES MELLITUS
     Dosage: 2 TABLETS/DAY
     Dates: start: 20090601, end: 20090926
  2. GALVUS MET [Suspect]
     Dosage: 2 TABLETS/DAY
     Dates: start: 20091115

REACTIONS (4)
  - HYPOGLYCAEMIA [None]
  - INFLUENZA [None]
  - OEDEMA PERIPHERAL [None]
  - VIRAL INFECTION [None]
